FAERS Safety Report 16787527 (Version 1)
Quarter: 2019Q3

REPORT INFORMATION
  Report Type: Spontaneous
  Country: US (occurrence: US)
  Receive Date: 20190909
  Receipt Date: 20190909
  Transmission Date: 20191005
  Serious: No
  Sender: FDA-Public Use
  Company Number: US-BAYER-2019-161524

PATIENT
  Age: 6 Decade
  Sex: Female

DRUGS (1)
  1. ESTRADIOL. [Suspect]
     Active Substance: ESTRADIOL
     Route: 062

REACTIONS (5)
  - Incorrect dose administered by product [None]
  - Feeling abnormal [None]
  - Product use complaint [None]
  - Anxiety disorder [None]
  - Product quality issue [None]
